FAERS Safety Report 7951988-3 (Version None)
Quarter: 2011Q4

REPORT INFORMATION
  Report Type: 
  Country: None (occurrence: None)
  Receive Date: 20111201
  Receipt Date: 20111128
  Transmission Date: 20120403
  Serious: Yes (Death)
  Sender: FDA-Public Use
  Company Number: US-PFIZER INC-2011227952

PATIENT
  Age: 50 Year
  Sex: Female

DRUGS (1)
  1. XANAX [Suspect]
     Indication: DEPRESSION
     Dosage: UNK
     Route: 048

REACTIONS (1)
  - HEPATITIS C [None]
